FAERS Safety Report 20083036 (Version 2)
Quarter: 2021Q4

REPORT INFORMATION
  Report Type: Report from Study
  Country: MX (occurrence: MX)
  Receive Date: 20211117
  Receipt Date: 20211119
  Transmission Date: 20220303
  Serious: No
  Sender: FDA-Public Use
  Company Number: MX-JNJFOC-20210762493

PATIENT
  Age: 64 Year
  Sex: Female
  Weight: 58 kg

DRUGS (1)
  1. SIMPONI [Suspect]
     Active Substance: GOLIMUMAB
     Indication: Rheumatoid arthritis
     Dosage: STRENGTH: 50.00 MG / 0.50 ML
     Route: 058
     Dates: start: 20210315

REACTIONS (3)
  - Device defective [Unknown]
  - Product dose omission issue [Unknown]
  - Needle issue [Unknown]

NARRATIVE: CASE EVENT DATE: 20210626
